FAERS Safety Report 13593173 (Version 1)
Quarter: 2017Q2

REPORT INFORMATION
  Report Type: Spontaneous
  Country: US (occurrence: US)
  Receive Date: 20170530
  Receipt Date: 20170530
  Transmission Date: 20170830
  Serious: No
  Sender: FDA-Public Use
  Company Number: US-ASTRAZENECA-2017SE55331

PATIENT

DRUGS (2)
  1. NEXIUM [Suspect]
     Active Substance: ESOMEPRAZOLE MAGNESIUM
     Route: 048
  2. NAPROXEN. [Suspect]
     Active Substance: NAPROXEN
     Route: 065

REACTIONS (3)
  - Gastritis [Unknown]
  - Drug ineffective [Unknown]
  - Adverse event [Unknown]
